FAERS Safety Report 6611586-0 (Version None)
Quarter: 2010Q1

REPORT INFORMATION
  Report Type: 
  Country: None (occurrence: None)
  Receive Date: 20100303
  Receipt Date: 20100222
  Transmission Date: 20100710
  Serious: Yes (Hospitalization)
  Sender: FDA-Public Use
  Company Number: US-BRACCO-001677

PATIENT
  Age: 66 Year
  Sex: Female

DRUGS (3)
  1. ISOVUE-128 [Suspect]
     Indication: COMPUTERISED TOMOGRAM
     Route: 065
     Dates: start: 20071120, end: 20071120
  2. ISOVUE-128 [Suspect]
     Indication: CHEST PAIN
     Route: 065
     Dates: start: 20071120, end: 20071120
  3. ULTRAVIST 150 [Suspect]

REACTIONS (3)
  - CHEST PAIN [None]
  - DYSPNOEA [None]
  - PLEURAL EFFUSION [None]
